FAERS Safety Report 7970678-4 (Version None)
Quarter: 2011Q4

REPORT INFORMATION
  Report Type: 
  Country: None (occurrence: None)
  Receive Date: 20111212
  Receipt Date: 20111205
  Transmission Date: 20120403
  Serious: Yes (Hospitalization)
  Sender: FDA-Public Use
  Company Number: NL-AMGEN-NLDSP2011064584

PATIENT
  Age: 44 Year
  Sex: Female

DRUGS (9)
  1. CYCLOPHOSPHAMIDE [Suspect]
     Indication: BREAST CANCER
     Dosage: 980 MG, QD
     Route: 042
     Dates: start: 20111104
  2. METFORMIN HCL [Concomitant]
     Dosage: 100 MG, UNK
  3. NEULASTA [Suspect]
     Indication: PROPHYLAXIS
  4. CONTRACEPTIVES [Concomitant]
     Dosage: UNK
     Route: 030
  5. LITHIUM [Concomitant]
     Dosage: 300 MG, UNK
  6. DOXORUBICIN HCL [Suspect]
     Indication: BREAST CANCER
     Dosage: 98 MG, QD
     Route: 042
     Dates: start: 20111104
  7. DOCETAXEL [Suspect]
     Indication: BREAST CANCER
     Dosage: 140 MG, QD
     Route: 042
     Dates: start: 20111104
  8. OXAZEPAM [Concomitant]
     Dosage: 10 MG, UNK
  9. NORTRIPTYLINE HCL [Concomitant]

REACTIONS (1)
  - SOCIAL PROBLEM [None]
